FAERS Safety Report 9201222 (Version 2)
Quarter: 2013Q2

REPORT INFORMATION
  Report Type: Spontaneous
  Country: US (occurrence: US)
  Receive Date: 20130401
  Receipt Date: 20130411
  Transmission Date: 20140414
  Serious: Yes (Death)
  Sender: FDA-Public Use
  Company Number: PHEH2013US007077

PATIENT
  Sex: Male

DRUGS (1)
  1. EXJADE [Suspect]
     Indication: HEREDITARY HAEMOCHROMATOSIS
     Dosage: DAILY
     Route: 048
     Dates: start: 20101227

REACTIONS (1)
  - Bacteraemia [Fatal]
